FAERS Safety Report 6857192-4 (Version None)
Quarter: 2010Q3

REPORT INFORMATION
  Report Type: 
  Country: None (occurrence: None)
  Receive Date: 20100719
  Receipt Date: 20100708
  Transmission Date: 20110219
  Serious: Yes (Hospitalization)
  Sender: FDA-Public Use
  Company Number: IT-AMGEN-QUU423178

PATIENT
  Sex: Female

DRUGS (4)
  1. ENBREL [Suspect]
     Indication: RHEUMATOID ARTHRITIS
     Dosage: 50 MG WEEKLY
     Route: 058
     Dates: start: 20080313, end: 20091101
  2. MEDROL [Suspect]
     Indication: RHEUMATOID ARTHRITIS
     Route: 048
     Dates: start: 20071219
  3. PANTORC [Concomitant]
     Dosage: 20 MG
     Route: 048
     Dates: start: 20071219
  4. VITAMIN A AND D IN COMBINATION [Concomitant]
     Dosage: 25 DROPS
     Route: 048
     Dates: start: 20091222

REACTIONS (1)
  - OVARIAN CANCER [None]
